FAERS Safety Report 10706449 (Version 1)
Quarter: 2015Q1

REPORT INFORMATION
  Report Type: Spontaneous
  Country: CA (occurrence: None)
  Receive Date: 20150109
  Receipt Date: 20150109
  Transmission Date: 20150721
  Serious: Yes (Hospitalization, Other)
  Sender: FDA-Public Use
  Company Number: CA-DEXPHARM-20141078

PATIENT
  Age: 77 Year
  Sex: Male

DRUGS (1)
  1. CHLORHEXIDINE [Suspect]
     Active Substance: CHLORHEXIDINE
     Indication: PREOPERATIVE CARE
     Route: 061

REACTIONS (6)
  - Skin graft [None]
  - Burns third degree [None]
  - Burns second degree [None]
  - Procedural complication [None]
  - Burns first degree [None]
  - Hypertrophic scar [None]
